FAERS Safety Report 24184726 (Version 1)
Quarter: 2024Q3

REPORT INFORMATION
  Report Type: Spontaneous
  Country: US (occurrence: US)
  Receive Date: 20240807
  Receipt Date: 20240807
  Transmission Date: 20241016
  Serious: Yes (Death)
  Sender: NOVARTIS
  Company Number: US-002147023-NVSC2024US160500

PATIENT
  Sex: Female

DRUGS (1)
  1. MEKINIST [Suspect]
     Active Substance: TRAMETINIB DIMETHYL SULFOXIDE
     Indication: Acute myeloid leukaemia
     Dosage: 2 MG, QD (BY MOUTH)
     Route: 048
     Dates: start: 202404

REACTIONS (2)
  - Death [Fatal]
  - Drug ineffective [Unknown]
